FAERS Safety Report 8918593 (Version 1)
Quarter: 2012Q4

REPORT INFORMATION
  Report Type: 
  Country: US (occurrence: US)
  Receive Date: 20121120
  Receipt Date: 20121120
  Transmission Date: 20130627
  Serious: No
  Sender: FDA-Public Use
  Company Number: US-ASTRAZENECA-2012SE19338

PATIENT
  Age: 52 Year
  Sex: Female
  Weight: 106.6 kg

DRUGS (13)
  1. NEXIUM [Suspect]
     Indication: GASTROOESOPHAGEAL REFLUX DISEASE
     Route: 048
     Dates: start: 2005
  2. LOSARTAN [Concomitant]
     Indication: HYPERTENSION
  3. SPIRONOLACTONE [Concomitant]
     Indication: HYPERTENSION
  4. SPIRONOLACTONE [Concomitant]
     Indication: CARDIAC DISORDER
  5. LEVOTHYROXINE [Concomitant]
     Indication: THYROID DISORDER
  6. CRESTOR [Concomitant]
     Indication: BLOOD CHOLESTEROL INCREASED
  7. CARVEDILOL [Concomitant]
     Indication: CARDIAC DISORDER
  8. METHOCARBAMOL [Concomitant]
     Indication: MUSCLE SPASMS
  9. IBUPROFEN [Concomitant]
     Indication: PAIN
  10. CITALOPRAM [Concomitant]
     Indication: DEPRESSION
  11. KCL [Concomitant]
  12. BUPROPION [Concomitant]
     Indication: DEPRESSION
  13. FUROSEMIDE [Concomitant]
     Indication: DIURETIC THERAPY

REACTIONS (4)
  - Weight loss poor [Not Recovered/Not Resolved]
  - Gastritis [Unknown]
  - Abdominal distension [Unknown]
  - Abdominal discomfort [Unknown]
